FAERS Safety Report 5333408-0 (Version None)
Quarter: 2007Q2

REPORT INFORMATION
  Report Type: 
  Country: None (occurrence: None)
  Receive Date: 20070522
  Receipt Date: 20070522
  Transmission Date: 20071010
  Serious: No
  Sender: FDA-Public Use
  Company Number: None

PATIENT
  Age: 72 Year
  Sex: Male

DRUGS (2)
  1. MEPERIDINE HCL [Suspect]
     Indication: SURGERY
     Dosage: 50MG ONCE IV
     Route: 042
     Dates: start: 20061127, end: 20061127
  2. MIDAZOLAM HCL [Suspect]
     Dosage: 3MG OTHER IV
     Route: 042

REACTIONS (2)
  - HYPOTENSION [None]
  - LOSS OF CONSCIOUSNESS [None]
